FAERS Safety Report 26052921 (Version 2)
Quarter: 2025Q4

REPORT INFORMATION
  Report Type: Spontaneous
  Country: CL (occurrence: CL)
  Receive Date: 20251117
  Receipt Date: 20251125
  Transmission Date: 20260117
  Serious: Yes (Life-Threatening, Hospitalization)
  Sender: NOVARTIS
  Company Number: CL-002147023-NVSC2025CL176372

PATIENT
  Sex: Female

DRUGS (1)
  1. ENTRESTO [Suspect]
     Active Substance: SACUBITRIL\VALSARTAN
     Indication: Cardiac failure
     Dosage: 50 MG, BID
     Route: 065

REACTIONS (2)
  - Pulmonary embolism [Recovering/Resolving]
  - Cardiac ventricular thrombosis [Recovering/Resolving]

NARRATIVE: CASE EVENT DATE: 20250701
